FAERS Safety Report 11191914 (Version 4)
Quarter: 2015Q3

REPORT INFORMATION
  Report Type: Spontaneous
  Country: IT (occurrence: IT)
  Receive Date: 20150616
  Receipt Date: 20150907
  Transmission Date: 20151125
  Serious: Yes (Hospitalization)
  Sender: FDA-Public Use
  Company Number: IT-009507513-1506ITA007436

PATIENT
  Age: 58 Year
  Sex: Male

DRUGS (3)
  1. CIPROXIN (CIPROFLOXACIN) [Suspect]
     Active Substance: CIPROFLOXACIN
     Indication: PROSTATITIS
     Dosage: 500 MG, DAILY (QD), STRENGTH: 500 MG
     Route: 048
     Dates: start: 20141101, end: 20141105
  2. IBUPROFEN. [Suspect]
     Active Substance: IBUPROFEN
     Indication: INFLAMMATION
     Dosage: 2 G, DAILY (QD)
     Route: 048
     Dates: start: 20141112, end: 20141115
  3. NORFLOXACIN [Suspect]
     Active Substance: NORFLOXACIN
     Indication: PROSTATITIS
     Dosage: 400 MG, DAILY (QD)
     Route: 048
     Dates: start: 20141105, end: 20141108

REACTIONS (2)
  - Retching [Unknown]
  - Abdominal pain [Unknown]

NARRATIVE: CASE EVENT DATE: 20141115
